FAERS Safety Report 21841757 (Version 1)
Quarter: 2023Q1

REPORT INFORMATION
  Report Type: Spontaneous
  Country: US (occurrence: None)
  Receive Date: 20230110
  Receipt Date: 20230110
  Transmission Date: 20230417
  Serious: No
  Sender: FDA-Public Use
  Company Number: US-ROCHE-3257143

PATIENT
  Sex: Female
  Weight: 152.09 kg

DRUGS (1)
  1. OCREVUS [Suspect]
     Active Substance: OCRELIZUMAB
     Indication: Neuromyelitis optica spectrum disorder
     Route: 065
     Dates: start: 2017, end: 202003

REACTIONS (8)
  - Skin disorder [Recovered/Resolved]
  - Gastric disorder [Recovered/Resolved]
  - Eczema [Recovered/Resolved]
  - Injection site induration [Recovered/Resolved]
  - Infection [Recovered/Resolved]
  - Asthenia [Unknown]
  - Off label use [Unknown]
  - COVID-19 [Unknown]
